FAERS Safety Report 7471534-0 (Version None)
Quarter: 2011Q2

REPORT INFORMATION
  Report Type: 
  Country: None (occurrence: None)
  Receive Date: 20110502
  Receipt Date: 20110420
  Transmission Date: 20111010
  Serious: Yes (Hospitalization)
  Sender: FDA-Public Use
  Company Number: 11-000320

PATIENT
  Age: 41 Year
  Sex: Female
  Weight: 90.7 kg

DRUGS (5)
  1. AMLODIPINE (AMLODIPINE MALEATE) [Concomitant]
  2. LOESTRIN 24 FE [Suspect]
     Indication: ENDOMETRIOSIS
     Dosage: 20/1000 UG/QD,ORAL
     Route: 048
     Dates: start: 20060101
  3. LOESTRIN 24 FE [Suspect]
     Indication: CONTRACEPTION
     Dosage: 20/1000 UG/QD,ORAL
     Route: 048
     Dates: start: 20060101
  4. NEXIUM [Concomitant]
  5. BYSTOLIC [Concomitant]

REACTIONS (7)
  - GASTROOESOPHAGEAL REFLUX DISEASE [None]
  - EXPIRED DRUG ADMINISTERED [None]
  - WEIGHT INCREASED [None]
  - SPLENIC INJURY [None]
  - HYPERTENSION [None]
  - PANCREATIC CYST [None]
  - DRUG DOSE OMISSION [None]
